FAERS Safety Report 25263666 (Version 2)
Quarter: 2025Q2

REPORT INFORMATION
  Report Type: Spontaneous
  Country: US (occurrence: US)
  Receive Date: 20250502
  Receipt Date: 20250509
  Transmission Date: 20250716
  Serious: Yes (Hospitalization, Other)
  Sender: PFIZER
  Company Number: US-PFIZER INC-202500091881

PATIENT
  Age: 66 Year
  Sex: Male

DRUGS (8)
  1. FENTANYL CITRATE [Suspect]
     Active Substance: FENTANYL CITRATE
  2. BROMAZOLAM [Suspect]
     Active Substance: BROMAZOLAM
  3. COCAINE [Suspect]
     Active Substance: COCAINE
  4. DIPHENHYDRAMINE [Suspect]
     Active Substance: DIPHENHYDRAMINE
  5. HEROIN [Suspect]
     Active Substance: DIAMORPHINE
     Dosage: UNK, 4-5 BAGS, DAILY
  6. MEDETOMIDINE [Suspect]
     Active Substance: MEDETOMIDINE
  7. QUININE [Suspect]
     Active Substance: QUININE
  8. XYLAZINE [Suspect]
     Active Substance: XYLAZINE

REACTIONS (2)
  - Toxicity to various agents [Unknown]
  - Overdose [Unknown]
